FAERS Safety Report 14355010 (Version 2)
Quarter: 2018Q1

REPORT INFORMATION
  Report Type: Report from Study
  Country: CA (occurrence: CA)
  Receive Date: 20180105
  Receipt Date: 20180112
  Transmission Date: 20180509
  Serious: Yes (Other)
  Sender: FDA-Public Use
  Company Number: CA-MYLANLABS-2017M1082633

PATIENT
  Age: 93 Year
  Sex: Female

DRUGS (2)
  1. VENLAFAXINE [Suspect]
     Active Substance: VENLAFAXINE HYDROCHLORIDE
     Indication: DEPRESSION
     Dosage: 37.5 MG, QD
     Route: 065
     Dates: start: 200405
  2. VENLAFAXINE [Suspect]
     Active Substance: VENLAFAXINE HYDROCHLORIDE
     Dosage: 75 MG, QD
     Route: 065

REACTIONS (4)
  - Bronchiectasis [Recovered/Resolved]
  - Pulmonary fibrosis [Recovered/Resolved]
  - Interstitial lung disease [Recovered/Resolved]
  - Cardiomegaly [Recovered/Resolved]
